FAERS Safety Report 7025090-1 (Version None)
Quarter: 2010Q4

REPORT INFORMATION
  Report Type: 
  Country: None (occurrence: None)
  Receive Date: 20101001
  Receipt Date: 20100921
  Transmission Date: 20110411
  Serious: Yes (Hospitalization)
  Sender: FDA-Public Use
  Company Number: BE-MEDIMMUNE-MEDI-0011551

PATIENT
  Sex: Female
  Weight: 0.67 kg

DRUGS (1)
  1. SYNAGIS [Suspect]
     Route: 030
     Dates: start: 20091016, end: 20091119

REACTIONS (2)
  - FEEDING DISORDER OF INFANCY OR EARLY CHILDHOOD [None]
  - RESPIRATORY SYNCYTIAL VIRUS BRONCHIOLITIS [None]
